FAERS Safety Report 16076265 (Version 4)
Quarter: 2020Q4

REPORT INFORMATION
  Report Type: Spontaneous
  Country: US (occurrence: US)
  Receive Date: 20190315
  Receipt Date: 20201215
  Transmission Date: 20210113
  Serious: No
  Sender: FDA-Public Use
  Company Number: US-PFIZER INC-2019024393

PATIENT
  Age: 84 Year
  Sex: Female

DRUGS (2)
  1. PROCARDIA XL [Suspect]
     Active Substance: NIFEDIPINE
     Indication: HYPERTENSION
     Dosage: 60 UG, 1X/DAY (ONE TABLET PER DAY)
  2. PROCARDIA XL [Suspect]
     Active Substance: NIFEDIPINE
     Dosage: 30 MG, DAILY
     Route: 048

REACTIONS (2)
  - Urticaria [Recovered/Resolved]
  - Product prescribing error [Unknown]
